FAERS Safety Report 10886280 (Version 1)
Quarter: 2015Q1

REPORT INFORMATION
  Report Type: Spontaneous
  Country: US (occurrence: US)
  Receive Date: 20150304
  Receipt Date: 20150304
  Transmission Date: 20150721
  Serious: Yes (Hospitalization, Congenital Anomaly, Other)
  Sender: FDA-Public Use
  Company Number: US-APOTEX-2015AP007099

PATIENT
  Age: 0 Day
  Sex: Female

DRUGS (2)
  1. PAXIL [Suspect]
     Active Substance: PAROXETINE HYDROCHLORIDE
     Indication: ANXIETY
     Dosage: 20 MG, UNK
     Route: 064
  2. PAXIL [Suspect]
     Active Substance: PAROXETINE HYDROCHLORIDE
     Dosage: 40 MG, UNK
     Route: 064

REACTIONS (9)
  - Neonatal respiratory distress syndrome [Unknown]
  - Patent ductus arteriosus [Unknown]
  - Hypotension [Unknown]
  - Cystic lymphangioma [Unknown]
  - Ventricular septal defect [Unknown]
  - Atrial septal defect [Unknown]
  - Dilatation ventricular [Unknown]
  - Foetal exposure during pregnancy [Unknown]
  - Heart disease congenital [Unknown]

NARRATIVE: CASE EVENT DATE: 20010406
